FAERS Safety Report 6210258-4 (Version None)
Quarter: 2009Q2

REPORT INFORMATION
  Report Type: 
  Country: None (occurrence: None)
  Receive Date: 20090601
  Receipt Date: 20090525
  Transmission Date: 20091009
  Serious: Yes (Hospitalization)
  Sender: FDA-Public Use
  Company Number: FR-BRISTOL-MYERS SQUIBB COMPANY-14641518

PATIENT
  Age: 74 Year
  Sex: Female

DRUGS (8)
  1. GLUCOPHAGE [Suspect]
     Indication: TYPE 2 DIABETES MELLITUS
     Route: 048
     Dates: end: 20090126
  2. TRIATEC [Suspect]
     Indication: HYPERTENSION
     Dosage: TRIATEC 5MG TABLET
     Route: 048
     Dates: end: 20090126
  3. DAONIL [Concomitant]
     Indication: TYPE 2 DIABETES MELLITUS
     Dosage: DAONIL 5MG TABS
     Route: 048
  4. DEPAKENE [Concomitant]
     Indication: EPILEPSY
     Route: 048
  5. LASILIX FAIBLE [Concomitant]
     Indication: ISCHAEMIC CARDIOMYOPATHY
     Dosage: LASILIX FAIBLE 20MG TABLET
     Route: 048
  6. ELISOR TABS 20 MG [Concomitant]
     Indication: HYPERCHOLESTEROLAEMIA
     Route: 048
  7. KARDEGIC [Concomitant]
     Indication: CEREBROVASCULAR ACCIDENT PROPHYLAXIS
     Dosage: KARDEGIC 75MG(POWDER FOR ORAL SOLN)
     Route: 048
  8. CORDIPATCH [Concomitant]
     Indication: ISCHAEMIC HEART DISEASE PROPHYLAXIS
     Dosage: CORDIPATCH 10MG TRANSDERMAL PATCH
     Route: 062

REACTIONS (1)
  - PANCREATITIS ACUTE [None]
